FAERS Safety Report 6274475-X (Version None)
Quarter: 2009Q3

REPORT INFORMATION
  Report Type: 
  Country: None (occurrence: None)
  Receive Date: 20090720
  Receipt Date: 20090715
  Transmission Date: 20100115
  Serious: Yes (Death, Hospitalization, Other)
  Sender: FDA-Public Use
  Company Number: PHEH2009US05020

PATIENT
  Sex: Male
  Weight: 78.458 kg

DRUGS (1)
  1. GLEEVEC [Suspect]
     Indication: CHRONIC MYELOID LEUKAEMIA
     Dosage: 400 MG/DAY
     Route: 048
     Dates: start: 20090410, end: 20090601

REACTIONS (13)
  - ABDOMINAL PAIN [None]
  - ANAEMIA [None]
  - ASCITES [None]
  - BLOOD ALKALINE PHOSPHATASE INCREASED [None]
  - BLOOD BILIRUBIN INCREASED [None]
  - BLOOD CREATININE INCREASED [None]
  - BLOOD UREA INCREASED [None]
  - DYSPNOEA [None]
  - GALLBLADDER DISORDER [None]
  - HAEMORRHAGE [None]
  - HEPATIC FAILURE [None]
  - RENAL FAILURE CHRONIC [None]
  - SPLENOMEGALY [None]
